FAERS Safety Report 20148931 (Version 1)
Quarter: 2021Q4

REPORT INFORMATION
  Report Type: Spontaneous
  Country: US (occurrence: US)
  Receive Date: 20211204
  Receipt Date: 20211204
  Transmission Date: 20220303
  Serious: Yes (Death, Hospitalization)
  Sender: FDA-Public Use
  Company Number: US-NOVARTISPH-NVSC2021US276592

PATIENT
  Age: 61 Year
  Sex: Female

DRUGS (2)
  1. RANITIDINE [Suspect]
     Active Substance: RANITIDINE
     Indication: Urticaria pressure
     Dosage: 150 MG, BID
     Route: 048
     Dates: start: 200801, end: 201503
  2. RANITIDINE [Suspect]
     Active Substance: RANITIDINE
     Indication: Urticaria pressure
     Dosage: 150 MG, BID
     Route: 048
     Dates: start: 200801, end: 201503

REACTIONS (2)
  - Colorectal cancer stage IV [Fatal]
  - Product use in unapproved indication [Unknown]

NARRATIVE: CASE EVENT DATE: 20150301
